FAERS Safety Report 9241001 (Version 1)
Quarter: 2013Q1

REPORT INFORMATION
  Report Type: Spontaneous
  Country: US (occurrence: None)
  Receive Date: 20121120
  Receipt Date: 20121120
  Transmission Date: 20140127
  Serious: No
  Sender: FDA-Public Use
  Company Number: 1000039329

PATIENT
  Age: 55 Year
  Sex: Male

DRUGS (5)
  1. VIIBRYD [Suspect]
     Indication: ANXIETY
     Dosage: 10MG (10MG, 1 IN 1 D) ORAL
     Route: 048
     Dates: start: 20121005, end: 201210
  2. LISINOPRIL (LISINOPRIL) [Concomitant]
  3. LIPITOR (ATORVASTATIN CALCIUM) [Concomitant]
  4. NAMENDA (MEMANTINE HYDROCHLORIDE) [Concomitant]
  5. NIASPAN (NICOTINIC ACID) [Concomitant]

REACTIONS (3)
  - Feeling abnormal [None]
  - Anxiety [None]
  - Off label use [None]
